FAERS Safety Report 19422133 (Version 4)
Quarter: 2021Q4

REPORT INFORMATION
  Report Type: Report from Study
  Country: CA (occurrence: CA)
  Receive Date: 20210616
  Receipt Date: 20211109
  Transmission Date: 20220303
  Serious: Yes (Hospitalization)
  Sender: FDA-Public Use
  Company Number: CA-CELGENE-CAN-20210602674

PATIENT
  Age: 61 Year
  Sex: Male
  Weight: 84.5 kg

DRUGS (41)
  1. REVLIMID [Suspect]
     Active Substance: LENALIDOMIDE
     Indication: Plasma cell myeloma
     Dosage: 5 MILLIGRAM
     Route: 048
     Dates: start: 20140709, end: 20181127
  2. BUSULFAN [Suspect]
     Active Substance: BUSULFAN
     Indication: Plasma cell myeloma
     Dosage: 267.7 MILLIGRAM
     Route: 041
     Dates: start: 20140326, end: 20140328
  3. MELPHALAN [Suspect]
     Active Substance: MELPHALAN
     Indication: Plasma cell myeloma
     Dosage: 294 MILLIGRAM
     Route: 041
     Dates: start: 20140329, end: 20140329
  4. SODIUM CHLORIDE [Concomitant]
     Active Substance: SODIUM CHLORIDE
     Indication: Fluid replacement
     Route: 041
     Dates: start: 20140329, end: 20140412
  5. POTASSIUM CHLORIDE [Concomitant]
     Active Substance: POTASSIUM CHLORIDE
     Indication: Fluid replacement
     Route: 041
     Dates: start: 20140329, end: 20140412
  6. MAGNESIUM SULFATE [Concomitant]
     Active Substance: MAGNESIUM SULFATE
     Indication: Fluid replacement
     Route: 041
     Dates: start: 20140329, end: 20140330
  7. DEXAMETHASONE [Concomitant]
     Active Substance: DEXAMETHASONE
     Indication: Prophylaxis of nausea and vomiting
     Route: 041
     Dates: start: 20140326, end: 20140412
  8. Aprepitant cap [Concomitant]
     Indication: Prophylaxis of nausea and vomiting
     Dosage: 125 MILLIGRAM
     Route: 048
     Dates: start: 20140329, end: 20140329
  9. Aprepitant cap [Concomitant]
     Dosage: 80 MILLIGRAM
     Route: 048
     Dates: start: 20140330, end: 20140412
  10. ONDANSETRON [Concomitant]
     Active Substance: ONDANSETRON
     Indication: Prophylaxis of nausea and vomiting
     Dosage: 125 MILLIGRAM
     Route: 041
     Dates: start: 20140330, end: 20140412
  11. VITAMINS [Concomitant]
     Active Substance: VITAMINS
     Indication: Supplementation therapy
     Dosage: 1 TABLET
     Route: 048
     Dates: start: 20140423, end: 20150618
  12. MOXIFLOXACIN [Concomitant]
     Active Substance: MOXIFLOXACIN
     Indication: Infection prophylaxis
     Dosage: 400 MILLIGRAM
     Route: 048
     Dates: start: 20140330, end: 20140412
  13. TAMIFLU [Concomitant]
     Active Substance: OSELTAMIVIR PHOSPHATE
     Indication: Infection prophylaxis
     Dosage: 75 MILLIGRAM
     Route: 048
     Dates: start: 20140403, end: 20140412
  14. FLUCONAZOLE [Concomitant]
     Active Substance: FLUCONAZOLE
     Indication: Infection prophylaxis
     Dosage: 400 MILLIGRAM
     Route: 041
     Dates: start: 20140410, end: 20140412
  15. METRONIDAZOLE [Concomitant]
     Active Substance: METRONIDAZOLE
     Indication: Infection prophylaxis
     Dosage: 1000 MILLIGRAM
     Route: 041
     Dates: start: 20181130, end: 20181201
  16. CEFTRIAXONE [Concomitant]
     Active Substance: CEFTRIAXONE
     Indication: Infection prophylaxis
     Dosage: 1 GRAM
     Route: 041
     Dates: start: 20181201, end: 20181202
  17. TYLENOL [Concomitant]
     Active Substance: ACETAMINOPHEN
     Indication: Allogenic stem cell transplantation
     Dosage: 2 TABLETS
     Route: 048
     Dates: start: 20140331, end: 20140331
  18. BENADRYL [Concomitant]
     Active Substance: DIPHENHYDRAMINE HYDROCHLORIDE
     Indication: Allogenic stem cell transplantation
     Dosage: 25 MILLIGRAM
     Route: 041
     Dates: start: 20140331, end: 20140331
  19. COLACE [Concomitant]
     Active Substance: DOCUSATE SODIUM
     Indication: Constipation
     Dosage: 200 MILLIGRAM
     Route: 041
     Dates: start: 20140402, end: 20140403
  20. FILGRASTIM [Concomitant]
     Active Substance: FILGRASTIM
     Indication: Neutropenia
     Dosage: 300 MICROGRAM
     Route: 058
     Dates: start: 20140407, end: 20140412
  21. GRAVOL [Concomitant]
     Active Substance: DIMENHYDRINATE
     Indication: Nausea
     Dosage: 50 MILLIGRAM
     Route: 041
     Dates: start: 20140403, end: 20140403
  22. DIMENHYDRINATE [Concomitant]
     Active Substance: DIMENHYDRINATE
     Indication: Nausea
     Dosage: 200 MILLIGRAM
     Route: 041
     Dates: start: 20181201, end: 20181204
  23. ZANTAC [Concomitant]
     Active Substance: RANITIDINE HYDROCHLORIDE
     Indication: Prophylaxis
     Dosage: 200 MILLIGRAM
     Route: 048
     Dates: start: 201311, end: 201406
  24. VITAMIN B12 [Concomitant]
     Active Substance: CYANOCOBALAMIN
     Indication: Vitamin B12 deficiency
     Dosage: 200 MILLIGRAM
     Route: 048
     Dates: start: 2009
  25. PAMIDRONATE [Concomitant]
     Active Substance: PAMIDRONATE DISODIUM
     Indication: Prophylaxis
     Dosage: 200 MILLIGRAM
     Route: 041
     Dates: start: 201311, end: 20150706
  26. ZOMETA [Concomitant]
     Active Substance: ZOLEDRONIC ACID
     Indication: Prophylaxis
     Dosage: .1333 MILLIGRAM
     Route: 041
     Dates: start: 20150707, end: 20160316
  27. VITAMIN D [Concomitant]
     Active Substance: VITAMIN D NOS
     Indication: Supplementation therapy
     Dosage: 1 TABLET
     Route: 048
     Dates: start: 201504
  28. CURCUMIN [Concomitant]
     Active Substance: CURCUMIN
     Indication: Supplementation therapy
     Dosage: 1500 MILLIGRAM
     Route: 048
     Dates: start: 201409
  29. HEPATITIS B VIRUS VACCINE [Concomitant]
     Active Substance: HEPATITIS B VIRUS VACCINE
     Indication: Prophylaxis
     Dosage: 20 MICROGRAM
     Route: 058
     Dates: start: 20150427, end: 20150427
  30. SUDAFED [Concomitant]
     Active Substance: PSEUDOEPHEDRINE HYDROCHLORIDE
     Indication: Nasopharyngitis
     Route: 058
     Dates: start: 20150520, end: 20150522
  31. ASPIRIN [Concomitant]
     Active Substance: ASPIRIN
     Indication: Thrombosis prophylaxis
     Dosage: 81 MILLIGRAM
     Route: 048
     Dates: start: 201409
  32. HEPARIN [Concomitant]
     Active Substance: HEPARIN SODIUM
     Indication: Prophylaxis
     Dosage: 10000 IU (INTERNATIONAL UNIT)
     Route: 058
     Dates: start: 20181201, end: 20181204
  33. CHOLESTYRAMINE [Concomitant]
     Active Substance: CHOLESTYRAMINE
     Indication: Prophylaxis against diarrhoea
     Route: 048
     Dates: start: 20160830, end: 20160910
  34. CHOLESTYRAMINE [Concomitant]
     Active Substance: CHOLESTYRAMINE
     Route: 048
     Dates: start: 20160910
  35. ACETAMINOPHEN [Concomitant]
     Active Substance: ACETAMINOPHEN
     Indication: Pain
     Route: 048
     Dates: start: 20181201, end: 20181204
  36. SODIUM CHLORIDE [Concomitant]
     Active Substance: SODIUM CHLORIDE
     Indication: Prophylaxis against dehydration
     Route: 041
     Dates: start: 20181201, end: 20181204
  37. ADVIL COLD [Concomitant]
     Indication: Viral upper respiratory tract infection
     Dosage: 1 TABLET
     Route: 048
     Dates: start: 20160509, end: 20160511
  38. MERCAPTOPURINE [Concomitant]
     Active Substance: MERCAPTOPURINE
     Indication: B-cell lymphoma
     Route: 065
     Dates: start: 20210811
  39. VINCRISTINE [Concomitant]
     Active Substance: VINCRISTINE
     Indication: B-cell lymphoma
     Route: 065
     Dates: start: 20210811
  40. DOXORUBICIN [Concomitant]
     Active Substance: DOXORUBICIN
     Indication: B-cell lymphoma
     Route: 065
     Dates: start: 20210811
  41. ASPARAGINASE [Concomitant]
     Active Substance: ASPARAGINASE
     Indication: B-cell lymphoma
     Route: 065
     Dates: start: 20210811

REACTIONS (1)
  - Leukaemia [Not Recovered/Not Resolved]

NARRATIVE: CASE EVENT DATE: 20210606
